FAERS Safety Report 8509168-9 (Version None)
Quarter: 2012Q3

REPORT INFORMATION
  Report Type: 
  Country: None (occurrence: None)
  Receive Date: 20120713
  Receipt Date: 20120710
  Transmission Date: 20120928
  Serious: Yes (Hospitalization)
  Sender: FDA-Public Use
  Company Number: PL-GLAXOSMITHKLINE-Z0014634A

PATIENT
  Sex: Female
  Weight: 72 kg

DRUGS (3)
  1. CAPECITABINE [Suspect]
     Indication: BREAST CANCER METASTATIC
     Dosage: 2000MGM2 CYCLIC
     Route: 048
     Dates: start: 20111011
  2. CEFUROXIME [Concomitant]
     Indication: INFECTION PROPHYLAXIS
     Dosage: 1.5G PER DAY
     Route: 042
     Dates: start: 20120306, end: 20120319
  3. LAPATINIB [Suspect]
     Indication: BREAST CANCER METASTATIC
     Dosage: 1250MG PER DAY
     Route: 048
     Dates: start: 20111011

REACTIONS (1)
  - DEEP VEIN THROMBOSIS [None]
